FAERS Safety Report 10361263 (Version 8)
Quarter: 2015Q2

REPORT INFORMATION
  Report Type: Spontaneous
  Country: IT (occurrence: IT)
  Receive Date: 20140804
  Receipt Date: 20150605
  Transmission Date: 20150821
  Serious: Yes (Death, Hospitalization, Other)
  Sender: FDA-Public Use
  Company Number: IT-EXELIXIS-CABO-14003934

PATIENT
  Age: 55 Year
  Sex: Male
  Weight: 68 kg

DRUGS (8)
  1. LEVOTIROXINA [Concomitant]
     Active Substance: LEVOTHYROXINE SODIUM
  2. CALCIUM + VITAMIN D [Concomitant]
     Active Substance: CALCIUM\VITAMIN D
  3. ROCALTROL [Concomitant]
     Active Substance: CALCITRIOL
  4. COMETRIQ [Suspect]
     Active Substance: CABOZANTINIB S-MALATE
     Dosage: 80MG QOD X4DAYS/40MG QD X3DAYS (280MG/WK)
     Dates: start: 20140301, end: 20140703
  5. NEBIVOLOLO EG [Concomitant]
  6. PREGABALIN. [Concomitant]
     Active Substance: PREGABALIN
  7. OXYCODONE [Concomitant]
     Active Substance: OXYCODONE
  8. COMETRIQ [Suspect]
     Active Substance: CABOZANTINIB S-MALATE
     Indication: MEDULLARY THYROID CANCER
     Dosage: 80 MG, QD
     Route: 048
     Dates: start: 20131223, end: 20140108

REACTIONS (12)
  - Paraneoplastic syndrome [Fatal]
  - Dry gangrene [Unknown]
  - Stomatitis [Recovered/Resolved with Sequelae]
  - Asthenia [Recovered/Resolved]
  - Weight decreased [Recovered/Resolved with Sequelae]
  - Skin ulcer [Unknown]
  - Pyrexia [Recovered/Resolved with Sequelae]
  - Pneumonia [Recovering/Resolving]
  - Performance status decreased [Recovering/Resolving]
  - General physical health deterioration [Fatal]
  - Dysphagia [Recovered/Resolved with Sequelae]
  - Fatigue [Recovered/Resolved with Sequelae]

NARRATIVE: CASE EVENT DATE: 20131226
